FAERS Safety Report 23390993 (Version 2)
Quarter: 2024Q1

REPORT INFORMATION
  Report Type: Spontaneous
  Country: US (occurrence: US)
  Receive Date: 20240111
  Receipt Date: 20240118
  Transmission Date: 20240410
  Serious: Yes (Hospitalization, Other)
  Sender: FDA-Public Use
  Company Number: US-BIOVITRUM-2023-US-020517

PATIENT
  Age: 7 Decade
  Sex: Female

DRUGS (11)
  1. FLUCONAZOLE [Suspect]
     Active Substance: FLUCONAZOLE
     Indication: Infection prophylaxis
     Dosage: DAY 8-DAY 9
  2. FLUCONAZOLE [Suspect]
     Active Substance: FLUCONAZOLE
     Dosage: DAY 4-DAY 7
  3. CIPROFLOXACIN [Interacting]
     Active Substance: CIPROFLOXACIN
     Indication: Infection prophylaxis
     Dosage: DAY 8
  4. CIPROFLOXACIN [Interacting]
     Active Substance: CIPROFLOXACIN
     Dosage: DAY 9
  5. CIPROFLOXACIN [Interacting]
     Active Substance: CIPROFLOXACIN
     Dosage: DAY 4-DAY 6
  6. CIPROFLOXACIN [Interacting]
     Active Substance: CIPROFLOXACIN
     Dosage: DAY 7
  7. CIPROFLOXACIN [Interacting]
     Active Substance: CIPROFLOXACIN
  8. AVATROMBOPAG [Interacting]
     Active Substance: AVATROMBOPAG
     Indication: Immune thrombocytopenia
  9. AVATROMBOPAG [Interacting]
     Active Substance: AVATROMBOPAG
  10. RITUXIMAB [Concomitant]
     Active Substance: RITUXIMAB
     Indication: Product used for unknown indication
     Dosage: DAY 17
  11. CEFEPIME [Concomitant]
     Active Substance: CEFEPIME HYDROCHLORIDE
     Indication: Product used for unknown indication

REACTIONS (3)
  - Lactic acidosis [Recovered/Resolved]
  - Metabolic acidosis [Recovered/Resolved]
  - Drug interaction [Recovered/Resolved]
